FAERS Safety Report 7522465-9 (Version None)
Quarter: 2011Q2

REPORT INFORMATION
  Report Type: 
  Country: None (occurrence: None)
  Receive Date: 20110525
  Receipt Date: 20110510
  Transmission Date: 20111010
  Serious: Yes (Death, Life-Threatening, Hospitalization, Other)
  Sender: FDA-Public Use
  Company Number: 2011MA005750

PATIENT
  Age: 35 Year
  Sex: Female

DRUGS (2)
  1. FLUDARABINE PHOSPHATE [Suspect]
     Indication: BONE MARROW TRANSPLANT
     Dosage: 38.5 MG/M2;QD
  2. CYCLOPHOSPHAMIDE [Concomitant]

REACTIONS (8)
  - HYPOREFLEXIA [None]
  - SEPSIS [None]
  - CEREBRAL SMALL VESSEL ISCHAEMIC DISEASE [None]
  - NEUROLOGICAL SYMPTOM [None]
  - COMA [None]
  - BRONCHOPULMONARY ASPERGILLOSIS [None]
  - BLINDNESS [None]
  - RENAL FAILURE ACUTE [None]
